FAERS Safety Report 8592012-1 (Version None)
Quarter: 2012Q3

REPORT INFORMATION
  Report Type: 
  Country: None (occurrence: None)
  Receive Date: 20120814
  Receipt Date: 20120809
  Transmission Date: 20120928
  Serious: Yes (Death)
  Sender: FDA-Public Use
  Company Number: FR-PFIZER INC-2012193974

PATIENT
  Age: 67 Year
  Sex: Male

DRUGS (13)
  1. CYTARABINE [Suspect]
     Indication: B-CELL LYMPHOMA
     Dosage: 100 MG/M2, SINGLE
     Route: 042
     Dates: start: 20120222, end: 20120222
  2. ONDANSETRON [Suspect]
     Indication: PREMEDICATION
     Dosage: 8 MG, 1X/DAY
     Route: 042
     Dates: start: 20120221, end: 20120222
  3. DIAMICRON [Concomitant]
     Dosage: 30 MG, 1X/DAY
     Route: 048
  4. AMLODIPINE [Concomitant]
     Dosage: 5 MG, 1X/DAY
     Route: 048
  5. ACETAMINOPHEN [Concomitant]
     Dosage: AS NEEDED
     Route: 048
  6. EMEND [Suspect]
     Indication: PREMEDICATION
     Dosage: 80 MG, 1X/DAY
     Route: 048
     Dates: start: 20120221, end: 20120222
  7. BICNU [Concomitant]
     Indication: B-CELL LYMPHOMA
     Dosage: 300 MG/M2, SINGLE, OVER 1H
     Route: 042
     Dates: start: 20120221, end: 20120221
  8. NEXIUM [Concomitant]
     Dosage: 40 MG, 1X/DAY
     Route: 048
  9. PRAVASTATIN [Concomitant]
     Dosage: 10 MG, 1X/DAY
     Route: 048
  10. VALIUM [Concomitant]
     Dosage: 10 MG, 1X/DAY
     Route: 048
  11. TRAMADOL HCL [Concomitant]
     Dosage: AS NEEDED
     Route: 048
  12. METHYLPREDNISOLONE [Suspect]
     Indication: PREMEDICATION
     Dosage: 160 MG, 1X/DAY
     Route: 042
     Dates: start: 20120221, end: 20120222
  13. ETOPOSIDE [Suspect]
     Indication: B-CELL LYMPHOMA
     Dosage: 100 MG/M2, SINGLE
     Route: 042
     Dates: start: 20120222, end: 20120222

REACTIONS (2)
  - CARDIO-RESPIRATORY ARREST [None]
  - ELECTROCARDIOGRAM QT PROLONGED [None]
